FAERS Safety Report 4548615-4 (Version None)
Quarter: 2005Q1

REPORT INFORMATION
  Report Type: 
  Country: None (occurrence: None)
  Receive Date: 20041227
  Receipt Date: 20040916
  Transmission Date: 20050727
  Serious: No
  Sender: FDA-Public Use
  Company Number: 04P-163-0273430-00

PATIENT
  Age: 57 Year
  Sex: Female
  Weight: 52.6173 kg

DRUGS (13)
  1. HUMIRA [Suspect]
     Indication: RHEUMATOID ARTHRITIS
     Dosage: 40 MG, 1 IN 2 WK, SUBCUTANEOUS
     Route: 058
     Dates: start: 20031201
  2. NIFEDIPINE [Concomitant]
  3. ESTROPIPATE [Concomitant]
  4. PENTOXIFYLLINE [Concomitant]
  5. SALSALATE [Concomitant]
  6. TOCOPHEROL CONCENTRATE CAP [Concomitant]
  7. CALCIUM CARBONATE [Concomitant]
  8. FAMOTIDINE [Concomitant]
  9. DEXTROPROPOXYPHENE NAPSILATE [Concomitant]
  10. FERROUS SULFATE TAB [Concomitant]
  11. POTASSIUM CHLORIDE [Concomitant]
  12. LEFLUNOMIDE [Concomitant]
  13. HYDROCHLOROTHIAZIDE [Concomitant]

REACTIONS (1)
  - ARTHRALGIA [None]
